FAERS Safety Report 5518647-8 (Version None)
Quarter: 2007Q4

REPORT INFORMATION
  Report Type: 
  Country: None (occurrence: None)
  Receive Date: 20071113
  Receipt Date: 20071029
  Transmission Date: 20080405
  Serious: Yes (Death, Life-Threatening, Hospitalization)
  Sender: FDA-Public Use
  Company Number: US021611

PATIENT
  Age: 61 Year
  Sex: Male

DRUGS (12)
  1. TRISENOX [Suspect]
     Indication: ACUTE PROMYELOCYTIC LEUKAEMIA
     Dosage: 8.85 MG QD INTRAVENOUS DRIP
     Route: 041
     Dates: start: 20070713, end: 20070717
  2. TRISENOX [Suspect]
     Indication: ACUTE PROMYELOCYTIC LEUKAEMIA
     Dosage: 8.85 MG QD INTRAVENOUS DRIP
     Route: 041
     Dates: start: 20070725, end: 20070803
  3. IDARUBICIN HCL [Concomitant]
  4. TRETINOIN [Concomitant]
  5. POTASSIUM REPLACEMENT THERAPY [Concomitant]
  6. GABEXATE MESILATE [Concomitant]
  7. CEFEPIME DIHYDROCHLORIDE [Concomitant]
  8. ITRACONAZOLE [Concomitant]
  9. DEXAMETHASONE SODIUM PHOSPHATE [Concomitant]
  10. LEVOFLOXACIN [Concomitant]
  11. TRANEXAMIC ACID [Concomitant]
  12. FAMOTIDINE [Concomitant]

REACTIONS (4)
  - ACUTE PROMYELOCYTIC LEUKAEMIA DIFFERENTIATION SYNDROME [None]
  - ELECTROCARDIOGRAM QT PROLONGED [None]
  - MULTI-ORGAN FAILURE [None]
  - VENTRICULAR TACHYCARDIA [None]
